FAERS Safety Report 20968543 (Version 1)
Quarter: 2022Q2

REPORT INFORMATION
  Report Type: Spontaneous
  Country: US (occurrence: US)
  Receive Date: 20220616
  Receipt Date: 20220616
  Transmission Date: 20220721
  Serious: No
  Sender: FDA-Public Use
  Company Number: US-MYLANLABS-2022M1031095

PATIENT
  Sex: Female

DRUGS (1)
  1. ESTRADIOL TRANSDERMAL SYSTEM [Suspect]
     Active Substance: ESTRADIOL
     Indication: Hormone replacement therapy
     Dosage: 0.05 MILLIGRAM, QD (ONCE-WEEKLY)
     Route: 062

REACTIONS (5)
  - Product substitution issue [Unknown]
  - Product size issue [Unknown]
  - Product colour issue [Unknown]
  - Product physical issue [Unknown]
  - Product adhesion issue [Unknown]
